FAERS Safety Report 12475570 (Version 4)
Quarter: 2020Q1

REPORT INFORMATION
  Report Type: Report from Study
  Country: US (occurrence: US)
  Receive Date: 20160617
  Receipt Date: 20200218
  Transmission Date: 20200409
  Serious: Yes (Hospitalization)
  Sender: FDA-Public Use
  Company Number: US-BAYER-2016-093107

PATIENT
  Age: 67 Year
  Sex: Female
  Weight: 119.73 kg

DRUGS (6)
  1. AMLODIPINE [Concomitant]
     Active Substance: AMLODIPINE BESYLATE
  2. ADEMPAS [Suspect]
     Active Substance: RIOCIGUAT
     Indication: PULMONARY ARTERIAL HYPERTENSION
     Dosage: UNK
  3. ADEMPAS [Suspect]
     Active Substance: RIOCIGUAT
     Indication: PULMONARY ARTERIAL HYPERTENSION
     Dosage: UNK
     Dates: start: 20150224
  4. WARFARIN [Concomitant]
     Active Substance: WARFARIN
  5. ADEMPAS [Suspect]
     Active Substance: RIOCIGUAT
     Indication: PULMONARY ARTERIAL HYPERTENSION
     Dosage: 2.5 MG, TID
     Route: 048
  6. TYVASO [Suspect]
     Active Substance: TREPROSTINIL
     Dosage: UNK
     Dates: end: 201605

REACTIONS (7)
  - Feeling jittery [None]
  - Gastrointestinal haemorrhage [Unknown]
  - Mouth haemorrhage [None]
  - Tremor [None]
  - Product dose omission [None]
  - Hospitalisation [None]
  - Adverse drug reaction [None]

NARRATIVE: CASE EVENT DATE: 20160510
